FAERS Safety Report 12803957 (Version 3)
Quarter: 2025Q4

REPORT INFORMATION
  Report Type: Spontaneous
  Country: TH (occurrence: TH)
  Receive Date: 20161003
  Receipt Date: 20251205
  Transmission Date: 20260118
  Serious: Yes (Other)
  Sender: PFIZER
  Company Number: TH-MLMSERVICE-20160919-0429203-1

PATIENT
  Age: 20 Year
  Sex: Male

DRUGS (3)
  1. ZIPRASIDONE HYDROCHLORIDE [Suspect]
     Active Substance: ZIPRASIDONE HYDROCHLORIDE
     Indication: Schizophrenia
     Dosage: 80 MG, DAILY
  2. RISPERIDONE [Suspect]
     Active Substance: RISPERIDONE
     Indication: Schizophrenia
     Dosage: 3 MG, DAILY
  3. PERPHENAZINE [Suspect]
     Active Substance: PERPHENAZINE
     Indication: Schizophrenia
     Dosage: 24 MG, DAILY

REACTIONS (1)
  - Hallucination [Recovered/Resolved]
